FAERS Safety Report 8966999 (Version 2)
Quarter: 2013Q1

REPORT INFORMATION
  Report Type: Spontaneous
  Country: SE (occurrence: SE)
  Receive Date: 20121217
  Receipt Date: 20130225
  Transmission Date: 20140127
  Serious: Yes (Other)
  Sender: FDA-Public Use
  Company Number: SE-ELI_LILLY_AND_COMPANY-SE201212001902

PATIENT
  Sex: Female
  Weight: 80 kg

DRUGS (7)
  1. ZYPREXA [Suspect]
     Indication: SCHIZOPHRENIA
     Dosage: 5 MG, UNKNOWN
     Dates: start: 20120926, end: 20120928
  2. ZYPREXA [Suspect]
     Dosage: 10 MG, UNKNOWN
     Dates: start: 20120928, end: 20121016
  3. LYRICA [Concomitant]
     Indication: RESTLESSNESS
     Dosage: 1 DF, UNKNOWN
     Dates: start: 20110707, end: 20120425
  4. PARGITAN [Concomitant]
     Dosage: 5 MG, TID
     Dates: start: 20060316
  5. CISORDINOL                              /DEN/ [Concomitant]
     Dosage: 25 MG, BID
     Dates: start: 20060316
  6. RISPERIDONE [Concomitant]
     Dosage: 25 MG, 2/M
     Route: 030
     Dates: start: 20080916
  7. STILNOCT [Concomitant]
     Dosage: 10 MG, QD
     Dates: start: 20120319

REACTIONS (2)
  - Syncope [Recovered/Resolved]
  - Fall [Unknown]
